FAERS Safety Report 11814502 (Version 1)
Quarter: 2015Q4

REPORT INFORMATION
  Report Type: Spontaneous
  Country: US (occurrence: US)
  Receive Date: 20151209
  Receipt Date: 20151209
  Transmission Date: 20160305
  Serious: Yes (Other)
  Sender: FDA-Public Use
  Company Number: US-BAUSCH-BL-2015-028150

PATIENT
  Age: 58 Year
  Sex: Female

DRUGS (2)
  1. INSTA-GLUCOSE [Suspect]
     Active Substance: DEXTROSE
     Indication: BLOOD GLUCOSE DECREASED
     Dosage: ONE PACKAGE AS NEEDED
     Route: 048
     Dates: start: 201311
  2. INSULIN [Concomitant]
     Active Substance: INSULIN NOS
     Indication: PRODUCT USED FOR UNKNOWN INDICATION

REACTIONS (6)
  - Wrong technique in product usage process [Recovered/Resolved]
  - Confusional state [None]
  - Product closure removal difficult [None]
  - Hyperhidrosis [None]
  - Blood glucose decreased [Recovered/Resolved]
  - Dizziness [None]

NARRATIVE: CASE EVENT DATE: 20151121
